FAERS Safety Report 7195708-1 (Version None)
Quarter: 2010Q4

REPORT INFORMATION
  Report Type: 
  Country: None (occurrence: None)
  Receive Date: 20101223
  Receipt Date: 20101007
  Transmission Date: 20110411
  Serious: No
  Sender: FDA-Public Use
  Company Number: US-AMGEN-TCS443824

PATIENT

DRUGS (6)
  1. ENBREL [Suspect]
     Indication: PSORIATIC ARTHROPATHY
     Dosage: 50 MG, QWK
     Dates: start: 20100601
  2. FENTANYL [Concomitant]
     Dosage: UNK UNK, UNK
  3. METHADONE [Concomitant]
     Dosage: UNK UNK, UNK
  4. DEXTROPROPOXYPHENE NAPSILATE W/ ACETAMINOPHEN [Concomitant]
     Dosage: UNK UNK, UNK
  5. ALPRAZOLAM [Concomitant]
     Dosage: UNK UNK, UNK
  6. DILTIAZEM HYDROCHLORIDE [Concomitant]
     Dosage: UNK UNK, UNK

REACTIONS (1)
  - ALOPECIA [None]
